FAERS Safety Report 17870259 (Version 1)
Quarter: 2020Q2

REPORT INFORMATION
  Report Type: Spontaneous
  Country: US (occurrence: US)
  Receive Date: 20200605
  Receipt Date: 20200605
  Transmission Date: 20200714
  Serious: No
  Sender: FDA-Public Use
  Company Number: None

PATIENT
  Age: 61 Year
  Sex: Female

DRUGS (1)
  1. BIKTARVY [Suspect]
     Active Substance: BICTEGRAVIR SODIUM\EMTRICITABINE\TENOFOVIR ALAFENAMIDE FUMARATE
     Indication: HIV INFECTION
     Dosage: ?          OTHER DOSE:50/200/25 ;?
     Route: 048
     Dates: start: 20200416, end: 20200423

REACTIONS (3)
  - Pneumonia [None]
  - Lung perforation [None]
  - Myocardial infarction [None]

NARRATIVE: CASE EVENT DATE: 20200423
